FAERS Safety Report 5577680-0 (Version None)
Quarter: 2007Q4

REPORT INFORMATION
  Report Type: 
  Country: None (occurrence: None)
  Receive Date: 20071231
  Receipt Date: 20071228
  Transmission Date: 20080405
  Serious: Yes (Other)
  Sender: FDA-Public Use
  Company Number: JP-BRISTOL-MYERS SQUIBB COMPANY-14026611

PATIENT
  Age: 7 Decade
  Sex: Female

DRUGS (3)
  1. TAXOL [Suspect]
     Indication: UTERINE CANCER
     Route: 041
  2. CARBOMERCK [Suspect]
     Indication: UTERINE CANCER
     Route: 041
  3. GRAN [Suspect]

REACTIONS (1)
  - RHABDOMYOLYSIS [None]
